FAERS Safety Report 9129250 (Version 3)
Quarter: 2013Q2

REPORT INFORMATION
  Report Type: Spontaneous
  Country: JP (occurrence: JP)
  Receive Date: 20130228
  Receipt Date: 20130401
  Transmission Date: 20140414
  Serious: Yes (Hospitalization)
  Sender: FDA-Public Use
  Company Number: JP-ROCHE-1150431

PATIENT
  Age: 69 Year
  Sex: Female
  Weight: 45 kg

DRUGS (5)
  1. ROCEPHIN [Suspect]
     Indication: BRAIN ABSCESS
     Dosage: DOSAGE IS UNCERTAIN
     Route: 041
     Dates: start: 20120907, end: 20121024
  2. VANCOMYCIN [Concomitant]
     Indication: BRAIN ABSCESS
     Route: 042
     Dates: start: 20120907, end: 20121031
  3. FLAGYL [Concomitant]
     Indication: BRAIN ABSCESS
     Route: 048
     Dates: start: 20120910, end: 20121101
  4. DECADRON [Concomitant]
     Route: 042
     Dates: start: 20120907, end: 20120909
  5. GLYCEOL [Concomitant]
     Indication: INTRACRANIAL HYPOTENSION
     Route: 042
     Dates: start: 20120907, end: 20120923

REACTIONS (2)
  - Cholelithiasis [Recovering/Resolving]
  - Cholecystitis [Unknown]
